FAERS Safety Report 16715767 (Version 2)
Quarter: 2019Q3

REPORT INFORMATION
  Report Type: Report from Study
  Country: US (occurrence: US)
  Receive Date: 20190819
  Receipt Date: 20190909
  Transmission Date: 20191005
  Serious: No
  Sender: FDA-Public Use
  Company Number: PHEH2019US033972

PATIENT
  Sex: Male

DRUGS (1)
  1. ENTRESTO [Suspect]
     Active Substance: SACUBITRIL\VALSARTAN
     Indication: PRODUCT USED FOR UNKNOWN INDICATION
     Dosage: 1 DF (24 MG SACUBITRIL AND 26 MG VALSARTAN), BID
     Route: 048

REACTIONS (3)
  - Muscular weakness [Unknown]
  - Dizziness [Unknown]
  - Hypoacusis [Unknown]
